FAERS Safety Report 5035676-1 (Version None)
Quarter: 2006Q2

REPORT INFORMATION
  Report Type: 
  Country: None (occurrence: None)
  Receive Date: 20060627
  Receipt Date: 20060616
  Transmission Date: 20061013
  Serious: Yes (Other)
  Sender: FDA-Public Use
  Company Number: SE-JNJFOC-20060605379

PATIENT
  Sex: Male

DRUGS (1)
  1. IPREN 400 MG [Suspect]
     Indication: PYREXIA
     Route: 048

REACTIONS (6)
  - ANXIETY [None]
  - CONFUSIONAL STATE [None]
  - HALLUCINATION [None]
  - NIGHTMARE [None]
  - PALPITATIONS [None]
  - SELF INJURIOUS BEHAVIOUR [None]
